FAERS Safety Report 9250432 (Version 1)
Quarter: 2013Q1

REPORT INFORMATION
  Report Type: Spontaneous
  Country: US (occurrence: None)
  Receive Date: 20121114
  Receipt Date: 20121114
  Transmission Date: 20140127
  Serious: Yes (Hospitalization)
  Sender: FDA-Public Use
  Company Number: A-NJ2012-59280

PATIENT
  Age: 45 Year
  Sex: Female

DRUGS (2)
  1. VENTAVIS [Suspect]
     Indication: PULMONARY ARTERIAL HYPERTENSION
     Dates: start: 20100722
  2. OXYGEN (OXYGEN) [Concomitant]

REACTIONS (2)
  - Dyspnoea [None]
  - Cough [None]
